FAERS Safety Report 13746196 (Version 1)
Quarter: 2017Q3

REPORT INFORMATION
  Report Type: Spontaneous
  Country: US (occurrence: US)
  Receive Date: 20170712
  Receipt Date: 20170712
  Transmission Date: 20171127
  Serious: Yes (Death, Hospitalization)
  Sender: FDA-Public Use
  Company Number: None

PATIENT
  Age: 16 Year
  Sex: Male
  Weight: 113.1 kg

DRUGS (16)
  1. PREDNISONE. [Suspect]
     Active Substance: PREDNISONE
     Dates: end: 20170705
  2. CYTARABINE. [Suspect]
     Active Substance: CYTARABINE
     Dates: end: 20170626
  3. ONCASPAR [Suspect]
     Active Substance: PEGASPARGASE
     Dates: end: 20170626
  4. VINCRISTINE SULFATE. [Suspect]
     Active Substance: VINCRISTINE SULFATE
     Dates: end: 20170630
  5. NEXIUM [Concomitant]
     Active Substance: ESOMEPRAZOLE MAGNESIUM
  6. ZOFRAN [Concomitant]
     Active Substance: ONDANSETRON HYDROCHLORIDE
  7. CALCIUM CARBONATE. [Concomitant]
     Active Substance: CALCIUM CARBONATE
  8. INSULIN [Concomitant]
     Active Substance: INSULIN NOS
  9. SEROQUEL [Concomitant]
     Active Substance: QUETIAPINE FUMARATE
  10. LEXAPRO [Concomitant]
     Active Substance: ESCITALOPRAM OXALATE
  11. RETIN-A [Concomitant]
     Active Substance: TRETINOIN
  12. DAUNORUBICIN [Suspect]
     Active Substance: DAUNORUBICIN
     Dates: end: 20170630
  13. METHOTREXATE. [Suspect]
     Active Substance: METHOTREXATE
     Dates: end: 20170630
  14. LAMICTAL XR [Concomitant]
     Active Substance: LAMOTRIGINE
  15. NORVASC [Concomitant]
     Active Substance: AMLODIPINE BESYLATE
  16. LITHIUM CR [Concomitant]
     Active Substance: LITHIUM CARBONATE

REACTIONS (9)
  - Hypotension [None]
  - Seizure [None]
  - Fall [None]
  - Heart rate decreased [None]
  - Loss of consciousness [None]
  - Intra-abdominal haemorrhage [None]
  - Ascites [None]
  - Dizziness [None]
  - Head injury [None]

NARRATIVE: CASE EVENT DATE: 20170706
